FAERS Safety Report 6437091-2 (Version None)
Quarter: 2009Q4

REPORT INFORMATION
  Report Type: 
  Country: None (occurrence: None)
  Receive Date: 20091112
  Receipt Date: 20091029
  Transmission Date: 20100525
  Serious: Yes (Disabling, Other)
  Sender: FDA-Public Use
  Company Number: PHHY2009IT46876

PATIENT
  Age: 75 Year
  Sex: Female

DRUGS (5)
  1. ZOMETA [Suspect]
     Indication: METASTASES TO BONE
     Dosage: 4 MG/ 5 ML,
     Route: 042
     Dates: start: 20040101
  2. PAMIDRONATE DISODIUM [Suspect]
     Indication: METASTASES TO BONE
     Dosage: 60 MG
     Dates: start: 20020101
  3. EXEMESTANE [Concomitant]
     Dosage: 25 MG
     Route: 048
  4. TAMOXIFEN CITRATE [Concomitant]
     Dosage: 20 MG
     Route: 048
  5. RAMIPRIL [Concomitant]
     Dosage: 2.5 MG
     Route: 048

REACTIONS (2)
  - OSTEONECROSIS [None]
  - SURGERY [None]
